FAERS Safety Report 11400506 (Version 1)
Quarter: 2015Q3

REPORT INFORMATION
  Report Type: Spontaneous
  Country: FI (occurrence: None)
  Receive Date: 20150819
  Receipt Date: 20150819
  Transmission Date: 20151125
  Serious: Yes (Other)
  Sender: FDA-Public Use
  Company Number: TIR-2015-0030

PATIENT
  Age: 46 Year
  Sex: Female

DRUGS (5)
  1. TRAMADOL. [Concomitant]
     Active Substance: TRAMADOL
  2. ETORICOXIB [Concomitant]
     Active Substance: ETORICOXIB
  3. LEVETIRACETAM (LEVETIRACETAM) (LEVETIRACETAM) [Suspect]
     Active Substance: LEVETIRACETAM
     Indication: EPILEPSY
  4. PREGABALIN. [Concomitant]
     Active Substance: PREGABALIN
  5. LEVOTHYROXINE. [Suspect]
     Active Substance: LEVOTHYROXINE
     Indication: HYPOTHYROIDISM

REACTIONS (3)
  - Hyperthyroidism [None]
  - Drug interaction [None]
  - Muscular weakness [None]
